FAERS Safety Report 5376717-1 (Version None)
Quarter: 2007Q2

REPORT INFORMATION
  Report Type: 
  Country: None (occurrence: None)
  Receive Date: 20070629
  Receipt Date: 20070629
  Transmission Date: 20071010
  Serious: Yes (Other)
  Sender: FDA-Public Use
  Company Number: None

PATIENT
  Age: 55 Year
  Sex: Female
  Weight: 95.2554 kg

DRUGS (1)
  1. BUPROPION HCL [Suspect]
     Indication: DEPRESSION
     Dosage: 300MG 1 X DAY PO JUST SHORT OF 3 MONTHS
     Route: 048

REACTIONS (12)
  - AGITATION [None]
  - ANXIETY [None]
  - DECREASED INTEREST [None]
  - DEPRESSED MOOD [None]
  - DRUG INEFFECTIVE [None]
  - FEAR OF DISEASE [None]
  - LETHARGY [None]
  - MALAISE [None]
  - PANIC ATTACK [None]
  - PHARMACEUTICAL PRODUCT COMPLAINT [None]
  - SOMNOLENCE [None]
  - VOMITING [None]
